FAERS Safety Report 14062742 (Version 3)
Quarter: 2018Q1

REPORT INFORMATION
  Report Type: Report from Study
  Country: JP (occurrence: JP)
  Receive Date: 20171009
  Receipt Date: 20180222
  Transmission Date: 20180508
  Serious: Yes (Hospitalization)
  Sender: FDA-Public Use
  Company Number: JP-SA-2017SA193005

PATIENT
  Age: 64 Year
  Sex: Male

DRUGS (4)
  1. REGPARA [Suspect]
     Active Substance: CINACALCET HYDROCHLORIDE
     Route: 048
     Dates: start: 20151117, end: 20170725
  2. PHOSBLOCK [Suspect]
     Active Substance: FERRIC HYDROXIDE
     Route: 065
     Dates: start: 20160606, end: 20160828
  3. PHOSBLOCK [Suspect]
     Active Substance: FERRIC HYDROXIDE
     Route: 065
     Dates: start: 20160411, end: 20160605
  4. REGPARA [Suspect]
     Active Substance: CINACALCET HYDROCHLORIDE
     Route: 048
     Dates: start: 20151102, end: 20151116

REACTIONS (5)
  - Gallbladder disorder [Recovering/Resolving]
  - Metastatic neoplasm [Recovering/Resolving]
  - Haemorrhagic hepatic cyst [Recovering/Resolving]
  - Gallbladder disorder [Recovering/Resolving]
  - Metastatic neoplasm [Recovering/Resolving]

NARRATIVE: CASE EVENT DATE: 20170530
